FAERS Safety Report 9119211 (Version 1)
Quarter: 2013Q1

REPORT INFORMATION
  Report Type: Spontaneous
  Country: US (occurrence: US)
  Receive Date: 20130207
  Receipt Date: 20130207
  Transmission Date: 20140127
  Serious: Yes (Hospitalization, Other)
  Sender: FDA-Public Use
  Company Number: US-BAXTER-2013BAX004129

PATIENT
  Age: 93 None
  Sex: Female

DRUGS (1)
  1. DIANEAL LOW CALCIUM [Suspect]
     Indication: PERITONEAL DIALYSIS
     Dosage: 1.3L PLUS LAST FILL OF 600 ML
     Route: 033
     Dates: start: 20110830

REACTIONS (2)
  - Blood pressure fluctuation [Recovered/Resolved]
  - Stress [Unknown]
